FAERS Safety Report 7235528-2 (Version None)
Quarter: 2011Q1

REPORT INFORMATION
  Report Type: 
  Country: None (occurrence: None)
  Receive Date: 20110120
  Receipt Date: 20110110
  Transmission Date: 20110831
  Serious: Yes (Other)
  Sender: FDA-Public Use
  Company Number: PHHY2010GB23218

PATIENT
  Sex: Male

DRUGS (4)
  1. AMLODIPINE [Concomitant]
     Dosage: 10 MG, UNK
     Route: 048
  2. VALPROATE SEMISODIUM [Concomitant]
     Dosage: 1000 MG, UNK
     Route: 048
  3. CLOZARIL [Suspect]
     Indication: SCHIZOPHRENIA
     Dosage: 500 MG, UNK
     Route: 048
     Dates: start: 20091106
  4. AMISULPRIDE [Concomitant]
     Dosage: 200 MG, UNK
     Route: 048

REACTIONS (6)
  - INTENTIONAL SELF-INJURY [None]
  - INADEQUATE DIET [None]
  - HAEMOGLOBIN DECREASED [None]
  - CONSTIPATION [None]
  - HYPERTENSION [None]
  - GASTROINTESTINAL HAEMORRHAGE [None]
